FAERS Safety Report 20170346 (Version 1)
Quarter: 2021Q4

REPORT INFORMATION
  Report Type: Spontaneous
  Country: FR (occurrence: FR)
  Receive Date: 20211210
  Receipt Date: 20211210
  Transmission Date: 20220303
  Serious: Yes (Hospitalization)
  Sender: FDA-Public Use
  Company Number: None

PATIENT
  Age: 79 Year
  Sex: Female

DRUGS (1)
  1. RISPERIDONE [Suspect]
     Active Substance: RISPERIDONE
     Indication: Persecutory delusion
     Dosage: 0.5 MILLIGRAM, QD
     Route: 048
     Dates: start: 20200122, end: 20210529

REACTIONS (4)
  - Condition aggravated [Recovering/Resolving]
  - Dyskinesia [Recovering/Resolving]
  - Parkinsonism [Recovering/Resolving]
  - Fall [Recovering/Resolving]

NARRATIVE: CASE EVENT DATE: 20210501
